FAERS Safety Report 6110973-7 (Version None)
Quarter: 2009Q1

REPORT INFORMATION
  Report Type: 
  Country: None (occurrence: None)
  Receive Date: 20090311
  Receipt Date: 20090310
  Transmission Date: 20090719
  Serious: Yes (Death, Hospitalization)
  Sender: FDA-Public Use
  Company Number: FR-BAYER-200915533GPV

PATIENT
  Age: 83 Year
  Sex: Male

DRUGS (5)
  1. SORAFENIB OR PLACEBO [Suspect]
     Indication: PANCREATIC CARCINOMA METASTATIC
     Route: 048
     Dates: start: 20070601, end: 20080123
  2. SORAFENIB OR PLACEBO [Suspect]
     Route: 048
     Dates: start: 20070601
  3. GEMZAR [Suspect]
     Indication: PANCREATIC CARCINOMA METASTATIC
     Route: 042
     Dates: start: 20070601, end: 20080108
  4. GEMZAR [Suspect]
     Route: 042
     Dates: start: 20071102, end: 20071102
  5. LASIX [Concomitant]
     Indication: DRUG USE FOR UNKNOWN INDICATION
     Route: 065

REACTIONS (5)
  - ACUTE PULMONARY OEDEMA [None]
  - ANAEMIA [None]
  - ATRIAL FIBRILLATION [None]
  - DYSPNOEA [None]
  - RESPIRATORY FAILURE [None]
